FAERS Safety Report 25983085 (Version 1)
Quarter: 2025Q4

REPORT INFORMATION
  Report Type: Spontaneous
  Country: US (occurrence: US)
  Receive Date: 20251031
  Receipt Date: 20251031
  Transmission Date: 20260117
  Serious: No
  Sender: GLAND PHARMA
  Company Number: US-GLANDPHARMA-US-2025GLNSPO01899

PATIENT

DRUGS (1)
  1. ALLOPURINOL [Suspect]
     Active Substance: ALLOPURINOL
     Indication: Gout
     Route: 065

REACTIONS (3)
  - Irritability [Unknown]
  - Pain [Unknown]
  - Drug ineffective for unapproved indication [Unknown]
